FAERS Safety Report 5023225-3 (Version None)
Quarter: 2006Q2

REPORT INFORMATION
  Report Type: 
  Country: None (occurrence: None)
  Receive Date: 20060428
  Receipt Date: 20060131
  Transmission Date: 20061013
  Serious: No
  Sender: FDA-Public Use
  Company Number: 012081

PATIENT
  Age: 67 Year
  Sex: Female

DRUGS (22)
  1. PRIALT [Suspect]
     Indication: PAIN
     Dosage: SEE IMAGE
     Route: 037
     Dates: start: 20051208, end: 20051219
  2. PRIALT [Suspect]
     Indication: PAIN
     Dosage: SEE IMAGE
     Route: 037
     Dates: start: 20051219, end: 20051229
  3. PRIALT [Suspect]
     Indication: PAIN
     Dosage: SEE IMAGE
     Route: 037
     Dates: start: 20051229
  4. HYDROMORPHONE HCL [Concomitant]
  5. NEURONTIN [Concomitant]
  6. DICLOFENAC (DICLOFENAC) [Concomitant]
  7. LOVASTATIN [Concomitant]
  8. LISINOPRIL/HCTZ (HYDROCHLOROTHIAZIDE, LISINOPRIL) [Concomitant]
  9. ALLEGRA /01314201/ (FEXOFENADINE) [Concomitant]
  10. ZOLOFT [Concomitant]
  11. FLOMAX /00889901/ (MORNIFLUMATE) [Concomitant]
  12. TORSEMIDE [Concomitant]
  13. ACETAMINOPHEN [Concomitant]
  14. ASCORBIC ACID [Concomitant]
  15. VITAMIN E /00110501/ (TOCOPHEROL) [Concomitant]
  16. MVI (VITAMINS NOS) [Concomitant]
  17. RED CLOVER (TRIFOLIUM PRATENSE) [Concomitant]
  18. CALCIUM CITRATE (CALCIUM CITRATE) [Concomitant]
  19. GLUCOSAMINE W/CHONDROITIN (CHONDROITIN SULFATE, GLUCOSAMINE) [Concomitant]
  20. FISH OIL (FISH OIL) [Concomitant]
  21. SIBERIAN GINSENG (ELEUTHEROCOCCUS SENTICOSUS) [Concomitant]
  22. POTASSIUM CHLORIDE [Concomitant]

REACTIONS (15)
  - ASTHENIA [None]
  - BACK PAIN [None]
  - BLOOD PRESSURE DECREASED [None]
  - DYSPEPSIA [None]
  - FAECAL INCONTINENCE [None]
  - FATIGUE [None]
  - HYPERAESTHESIA [None]
  - HYPOAESTHESIA [None]
  - MALAISE [None]
  - MUSCLE SPASMS [None]
  - NAUSEA [None]
  - NERVOUSNESS [None]
  - OEDEMA PERIPHERAL [None]
  - PAIN IN EXTREMITY [None]
  - PARAESTHESIA [None]
